FAERS Safety Report 18580672 (Version 2)
Quarter: 2020Q4

REPORT INFORMATION
  Report Type: Report from Study
  Country: KR (occurrence: KR)
  Receive Date: 20201204
  Receipt Date: 20201221
  Transmission Date: 20210114
  Serious: Yes (Hospitalization)
  Sender: FDA-Public Use
  Company Number: KR-JNJFOC-20201144358

PATIENT
  Age: 76 Year
  Sex: Male
  Weight: 73.5 kg

DRUGS (4)
  1. PLACEBO [Suspect]
     Active Substance: UNSPECIFIED INGREDIENT
     Indication: PROSTATE CANCER METASTATIC
     Dosage: MOST RECENT DOSE 24-NOV-2020
     Route: 048
  2. MEGAFORMIN [Concomitant]
     Indication: DIABETES MELLITUS
     Dates: start: 20200928
  3. HUMALOG MIX [Concomitant]
     Active Substance: INSULIN LISPRO
     Indication: DIABETES MELLITUS
     Dosage: QUICK PEN
     Route: 058
     Dates: start: 20200828
  4. HUMALOG MIX [Concomitant]
     Active Substance: INSULIN LISPRO
     Dosage: QUICK PEN
     Route: 058
     Dates: start: 20200828

REACTIONS (1)
  - Diabetes mellitus [Recovered/Resolved]

NARRATIVE: CASE EVENT DATE: 20201124
